FAERS Safety Report 14556120 (Version 1)
Quarter: 2018Q1

REPORT INFORMATION
  Report Type: Report from Study
  Country: US (occurrence: US)
  Receive Date: 20180221
  Receipt Date: 20180221
  Transmission Date: 20180509
  Serious: No
  Sender: FDA-Public Use
  Company Number: US-AMGEN-USASL2018022282

PATIENT
  Sex: Female

DRUGS (1)
  1. ENBREL [Suspect]
     Active Substance: ETANERCEPT
     Indication: RHEUMATOID ARTHRITIS
     Dosage: 50 MG, UNK
     Route: 065

REACTIONS (7)
  - Rash papular [Unknown]
  - Drug effect incomplete [Unknown]
  - Injection site pain [Unknown]
  - Rash erythematous [Unknown]
  - Rash pruritic [Unknown]
  - Injection site swelling [Unknown]
  - Injection site pruritus [Unknown]
